FAERS Safety Report 4636948-2 (Version None)
Quarter: 2005Q2

REPORT INFORMATION
  Report Type: 
  Country: None (occurrence: None)
  Receive Date: 20050414
  Receipt Date: 20050404
  Transmission Date: 20051028
  Serious: Yes (Other)
  Sender: FDA-Public Use
  Company Number: GBWYE554604APR05

PATIENT
  Age: 32 Year
  Sex: Male

DRUGS (2)
  1. MINOCIN [Suspect]
     Indication: ACNE
     Dosage: 100MG (FREQUENCY UNKNOWN)
     Route: 048
     Dates: start: 20050301, end: 20050330
  2. CIPRALEX (ESCITALOPRAM, ,0) [Suspect]
     Dosage: 20 MG
     Route: 048
     Dates: start: 20050301

REACTIONS (1)
  - VISUAL ACUITY REDUCED [None]
